FAERS Safety Report 5928234-5 (Version None)
Quarter: 2008Q4

REPORT INFORMATION
  Report Type: 
  Country: None (occurrence: None)
  Receive Date: 20081023
  Receipt Date: 20081010
  Transmission Date: 20090506
  Serious: Yes (Hospitalization, Disabling, Other)
  Sender: FDA-Public Use
  Company Number: US-MERCK-0806USA01242

PATIENT
  Age: 75 Year
  Sex: Female

DRUGS (5)
  1. FOSAMAX [Suspect]
     Indication: OSTEOPOROSIS
     Route: 048
     Dates: start: 19970301, end: 19990101
  2. FOSAMAX [Suspect]
     Route: 048
     Dates: start: 20050915, end: 20060626
  3. CORTICOSTEROIDS (UNSPECIFIED) [Concomitant]
     Route: 065
     Dates: start: 19981001
  4. [THERAPY UNSPECIFIED] [Concomitant]
     Indication: RHEUMATOID ARTHRITIS
     Route: 065
     Dates: start: 19980101
  5. ACTONEL [Suspect]
     Indication: OSTEOPOROSIS
     Route: 048
     Dates: start: 20000803, end: 20050501

REACTIONS (24)
  - ANXIETY [None]
  - ARTHROPATHY [None]
  - ASTHENIA [None]
  - ATAXIA [None]
  - ATROPHY [None]
  - CONFUSIONAL STATE [None]
  - DEPRESSION [None]
  - DIARRHOEA [None]
  - DIVERTICULUM [None]
  - DRUG INTOLERANCE [None]
  - FISTULA [None]
  - GASTROINTESTINAL HAEMORRHAGE [None]
  - HIP FRACTURE [None]
  - INFECTION [None]
  - JAW DISORDER [None]
  - JAW FRACTURE [None]
  - JOINT INJURY [None]
  - OSTEOMYELITIS [None]
  - OSTEONECROSIS [None]
  - OVERDOSE [None]
  - PELVIC FRACTURE [None]
  - ROTATOR CUFF SYNDROME [None]
  - SPINAL COMPRESSION FRACTURE [None]
  - URINARY TRACT INFECTION [None]
